FAERS Safety Report 10080131 (Version 1)
Quarter: 2014Q2

REPORT INFORMATION
  Report Type: Spontaneous
  Country: US (occurrence: US)
  Receive Date: 20140415
  Receipt Date: 20140415
  Transmission Date: 20141212
  Serious: No
  Sender: FDA-Public Use
  Company Number: US-JNJFOC-20140314540

PATIENT
  Age: 25 Year
  Sex: Female
  Weight: 56.25 kg

DRUGS (3)
  1. INVEGA SUSTENNA [Suspect]
     Indication: SCHIZOPHRENIA
     Route: 030
  2. INVEGA SUSTENNA [Suspect]
     Indication: SCHIZOPHRENIA
     Route: 030
     Dates: start: 20140211
  3. PLAN B ONE STEP [Interacting]
     Indication: CONTRACEPTION
     Route: 048
     Dates: start: 20140208, end: 20140208

REACTIONS (8)
  - Hot flush [Recovered/Resolved]
  - Menstruation irregular [Recovered/Resolved]
  - Abdominal distension [Not Recovered/Not Resolved]
  - Feeling hot [Not Recovered/Not Resolved]
  - Nausea [Not Recovered/Not Resolved]
  - Headache [Not Recovered/Not Resolved]
  - Fluid retention [Unknown]
  - Drug interaction [Unknown]
